FAERS Safety Report 10658204 (Version 1)
Quarter: 2014Q4

REPORT INFORMATION
  Report Type: Report from Study
  Country: IL (occurrence: IL)
  Receive Date: 20141217
  Receipt Date: 20141217
  Transmission Date: 20150529
  Serious: Yes (Other)
  Sender: FDA-Public Use
  Company Number: PHHY2014IL158809

PATIENT
  Sex: Male

DRUGS (1)
  1. GILENYA [Suspect]
     Active Substance: FINGOLIMOD HYDROCHLORIDE
     Indication: MULTIPLE SCLEROSIS
     Dosage: 0.5 MG, QD
     Route: 048
     Dates: start: 20140922

REACTIONS (5)
  - Chest injury [Recovering/Resolving]
  - Limb injury [Recovering/Resolving]
  - Road traffic accident [Recovering/Resolving]
  - Fall [Recovering/Resolving]
  - Jaw disorder [Recovering/Resolving]
